FAERS Safety Report 7155106-3 (Version None)
Quarter: 2010Q4

REPORT INFORMATION
  Report Type: 
  Country: None (occurrence: None)
  Receive Date: 20101214
  Receipt Date: 20101026
  Transmission Date: 20110411
  Serious: No
  Sender: FDA-Public Use
  Company Number: US-AMGEN-KDL339651

PATIENT

DRUGS (2)
  1. ENBREL [Suspect]
     Indication: RHEUMATOID ARTHRITIS
     Dosage: 50 MG, QWK
     Route: 058
     Dates: start: 20061130
  2. SIMVASTATIN [Concomitant]

REACTIONS (5)
  - COUGH [None]
  - PARANASAL SINUS HYPERSECRETION [None]
  - RHEUMATOID ARTHRITIS [None]
  - SINUS CONGESTION [None]
  - SINUSITIS [None]
